FAERS Safety Report 8023327-3 (Version None)
Quarter: 2012Q1

REPORT INFORMATION
  Report Type: 
  Country: None (occurrence: None)
  Receive Date: 20120104
  Receipt Date: 20111224
  Transmission Date: 20120608
  Serious: Yes (Other)
  Sender: FDA-Public Use
  Company Number: CN-NOVOPROD-335115

PATIENT

DRUGS (2)
  1. NOVOLIN R [Suspect]
     Indication: TYPE 2 DIABETES MELLITUS
     Dosage: 3 TO 4 IU IN THE MORNING AND 5- 6 IU IN THE EVENING
     Dates: start: 20110819
  2. NOVOLIN R [Suspect]
     Dosage: 3 TO 4 IU IN THE MORNING AND 5- 6 IU IN THE EVENING

REACTIONS (7)
  - VOMITING [None]
  - DYSPNOEA [None]
  - PALPITATIONS [None]
  - PRURITUS [None]
  - INDURATION [None]
  - FAECAL INCONTINENCE [None]
  - RASH [None]
